FAERS Safety Report 10089766 (Version 4)
Quarter: 2014Q2

REPORT INFORMATION
  Report Type: Spontaneous
  Country: JP (occurrence: JP)
  Receive Date: 20140421
  Receipt Date: 20140523
  Transmission Date: 20141212
  Serious: Yes (Life-Threatening, Hospitalization, Other)
  Sender: FDA-Public Use
  Company Number: JP-PFIZER INC-2014105900

PATIENT
  Age: 72 Year
  Sex: Male
  Weight: 34.1 kg

DRUGS (3)
  1. ZITHROMAC [Suspect]
     Indication: SPUTUM DISCOLOURED
     Dosage: 500 MG, 1X/DAY
     Route: 048
     Dates: start: 20140327, end: 20140329
  2. SPIRIVA [Suspect]
     Indication: CHRONIC OBSTRUCTIVE PULMONARY DISEASE
     Dosage: 2 DF, 1X/DAY
     Route: 055
     Dates: start: 201202
  3. CLARITH [Concomitant]
     Dosage: 200 MG, 2X/DAY
     Route: 048
     Dates: start: 20140327, end: 20140331

REACTIONS (2)
  - Pneumonia [Recovered/Resolved with Sequelae]
  - Urinary retention [Unknown]
